FAERS Safety Report 18234251 (Version 4)
Quarter: 2021Q4

REPORT INFORMATION
  Report Type: Report from Study
  Country: None (occurrence: DE)
  Receive Date: 20200904
  Receipt Date: 20211027
  Transmission Date: 20220303
  Serious: Yes (Hospitalization)
  Sender: FDA-Public Use
  Company Number: DE-ABBVIE-20P-062-3545736-00

PATIENT
  Age: 29 Year
  Sex: Female
  Weight: 63 kg

DRUGS (12)
  1. UPADACITINIB [Suspect]
     Active Substance: UPADACITINIB
     Indication: Crohn^s disease
     Route: 048
     Dates: start: 20200817, end: 20200827
  2. UPADACITINIB [Suspect]
     Active Substance: UPADACITINIB
     Route: 048
     Dates: start: 20200905
  3. VITAMIN C [Concomitant]
     Active Substance: ASCORBIC ACID
     Indication: Nutritional supplementation
     Route: 048
     Dates: start: 20200318
  4. ZINC [Concomitant]
     Active Substance: ZINC
     Indication: Nutritional supplementation
     Route: 048
     Dates: start: 20200318
  5. VITAMIN D [Concomitant]
     Active Substance: VITAMIN D NOS
     Indication: Hypovitaminosis
     Route: 048
     Dates: start: 2015
  6. PANTOZOL [Concomitant]
     Active Substance: PANTOPRAZOLE SODIUM
     Indication: Prophylaxis
     Route: 048
     Dates: start: 20191101
  7. METAMIZOLE [Concomitant]
     Active Substance: METAMIZOLE
     Indication: Headache
     Route: 048
     Dates: start: 2013
  8. OKOUBASAN [Concomitant]
     Indication: Nausea
     Route: 048
     Dates: start: 2013
  9. NUVARING [Concomitant]
     Active Substance: ETHINYL ESTRADIOL\ETONOGESTREL
     Indication: Contraception
     Route: 067
     Dates: start: 2013
  10. EBENOL HYDROCORTISON [Concomitant]
     Indication: Perioral dermatitis
     Route: 061
     Dates: start: 20200711
  11. BLACK CUMIN OIL [Concomitant]
     Indication: Bronchitis
     Route: 048
     Dates: start: 20200730
  12. PREDNISOLONE [Concomitant]
     Active Substance: PREDNISOLONE
     Indication: Crohn^s disease
     Route: 048
     Dates: start: 20200817

REACTIONS (1)
  - Pyelonephritis [Recovered/Resolved]

NARRATIVE: CASE EVENT DATE: 20200827
